FAERS Safety Report 16046793 (Version 1)
Quarter: 2019Q1

REPORT INFORMATION
  Report Type: Spontaneous
  Country: DE (occurrence: DE)
  Receive Date: 20190307
  Receipt Date: 20190307
  Transmission Date: 20190418
  Serious: Yes (Other)
  Sender: FDA-Public Use
  Company Number: DE-BAUSCH-BL-2019-006743

PATIENT
  Age: 43 Year
  Sex: Female

DRUGS (2)
  1. INFLANEFRAN [Suspect]
     Active Substance: PREDNISOLONE ACETATE
     Indication: HERPES ZOSTER
     Route: 065
     Dates: start: 2018
  2. ACICLOVIR [Suspect]
     Active Substance: ACYCLOVIR
     Indication: HERPES ZOSTER
     Route: 065
     Dates: start: 2018

REACTIONS (3)
  - Herpes zoster [Unknown]
  - Disease recurrence [Unknown]
  - Vitreous detachment [Unknown]

NARRATIVE: CASE EVENT DATE: 2018
